FAERS Safety Report 10408638 (Version 1)
Quarter: 2014Q3

REPORT INFORMATION
  Report Type: Spontaneous
  Country: US (occurrence: None)
  Receive Date: 20140822
  Receipt Date: 20140822
  Transmission Date: 20150326
  Serious: Yes (Other)
  Sender: FDA-Public Use
  Company Number: None

PATIENT
  Age: 30 Year
  Sex: Female
  Weight: 47 kg

DRUGS (2)
  1. PENICILLIN V POTASSIUM. [Suspect]
     Active Substance: PENICILLIN V POTASSIUM
     Indication: BACTERIAL INFECTION
     Dosage: 4 TIMES A DAY FOUR TIMES DAILY TAKEN BY MOUTH
     Route: 048
     Dates: start: 20140820, end: 20140820
  2. VITAMIN B COMPLEX [Concomitant]
     Active Substance: CYANOCOBALAMIN\DEXPANTHENOL\NIACINAMIDE\PYRIDOXINE HYDROCHLORIDE\RIBOFLAVIN 5^-PHOSPHATE SODIUM\THIAMINE HYDROCHLORIDE\VITAMIN B COMPLEX

REACTIONS (3)
  - Lip swelling [None]
  - Mouth swelling [None]
  - Swelling face [None]

NARRATIVE: CASE EVENT DATE: 20140820
